FAERS Safety Report 5176887-4 (Version None)
Quarter: 2006Q4

REPORT INFORMATION
  Report Type: 
  Country: None (occurrence: None)
  Receive Date: 20061218
  Receipt Date: 20061017
  Transmission Date: 20070319
  Serious: Yes (Other)
  Sender: FDA-Public Use
  Company Number: PHRM2006FR02884

PATIENT
  Age: 68 Year
  Sex: Female
  Weight: 65 kg

DRUGS (8)
  1. UTROGEST [Concomitant]
  2. VALSARTAN AND HYDROCHLOROTHIAZIDE [Concomitant]
     Route: 048
  3. ESTROGEL [Concomitant]
  4. LEXOMIL [Concomitant]
  5. HALDOL [Concomitant]
  6. LAMISIL [Suspect]
     Indication: NAIL TINEA
     Dosage: 250 MG, QD
     Route: 048
     Dates: start: 20060601, end: 20060621
  7. LEVOTHYROXINE SODIUM [Concomitant]
  8. ALDACTAZINE [Concomitant]

REACTIONS (6)
  - BLISTER [None]
  - GLOSSITIS [None]
  - MOUTH HAEMORRHAGE [None]
  - MOUTH ULCERATION [None]
  - STOMATITIS [None]
  - WEIGHT DECREASED [None]
